FAERS Safety Report 7078851-7 (Version None)
Quarter: 2010Q4

REPORT INFORMATION
  Report Type: 
  Country: None (occurrence: None)
  Receive Date: 20101102
  Receipt Date: 20101027
  Transmission Date: 20110411
  Serious: Yes (Other)
  Sender: FDA-Public Use
  Company Number: FR-SANOFI-AVENTIS-2010SA065415

PATIENT
  Age: 18 Year
  Sex: Female

DRUGS (6)
  1. NASACORT [Suspect]
     Route: 045
     Dates: start: 20090501, end: 20091001
  2. GARDASIL [Suspect]
     Dosage: 3 TIMES ACCORDING TO VACCINATION PROTOCOL
     Route: 030
     Dates: start: 20071001, end: 20080301
  3. XYZAL [Suspect]
     Route: 048
     Dates: start: 20090501
  4. YASMIN [Concomitant]
     Route: 048
  5. CROMOLYN SODIUM [Concomitant]
     Route: 047
  6. SINGULAIR [Concomitant]
     Route: 048

REACTIONS (1)
  - LUPUS-LIKE SYNDROME [None]
